FAERS Safety Report 4814058-9 (Version None)
Quarter: 2005Q4

REPORT INFORMATION
  Report Type: 
  Country: None (occurrence: None)
  Receive Date: 20051028
  Receipt Date: 20050802
  Transmission Date: 20060501
  Serious: No
  Sender: FDA-Public Use
  Company Number: US-GLAXOSMITHKLINE-A0568622A

PATIENT
  Age: 72 Year
  Sex: Female

DRUGS (10)
  1. SEREVENT [Suspect]
     Indication: ASTHMA
     Dosage: 1PUFF TWICE PER DAY
     Route: 055
     Dates: start: 20050201
  2. ATENOLOL [Concomitant]
  3. PREMARIN [Concomitant]
  4. ALBUTEROL [Concomitant]
  5. ASPIRIN [Concomitant]
  6. VITAMIN E [Concomitant]
  7. CALCIUM GLUCONATE [Concomitant]
  8. VITAMIN D [Concomitant]
  9. VITAMIN A [Concomitant]
  10. POTASSIUM CHLORIDE [Concomitant]

REACTIONS (2)
  - PHARMACEUTICAL PRODUCT COMPLAINT [None]
  - PHARYNGOLARYNGEAL PAIN [None]
